FAERS Safety Report 8530712 (Version 3)
Quarter: 2013Q2

REPORT INFORMATION
  Report Type: Report from Study
  Country: JP (occurrence: JP)
  Receive Date: 20120425
  Receipt Date: 20130524
  Transmission Date: 20140414
  Serious: Yes (Other)
  Sender: FDA-Public Use
  Company Number: JP-AMGEN-JPNSP2012025276

PATIENT
  Age: 52 Year
  Sex: Female
  Weight: 57 kg

DRUGS (17)
  1. ROMIPLOSTIM - KHK [Suspect]
     Indication: IDIOPATHIC THROMBOCYTOPENIC PURPURA
     Dosage: 2 MUG/KG, QWK
     Route: 058
     Dates: start: 20120316, end: 20120323
  2. ROMIPLOSTIM - KHK [Suspect]
     Dosage: 3 MUG/KG, QWK
     Route: 058
     Dates: start: 20120329, end: 20120405
  3. ROMIPLOSTIM - KHK [Suspect]
     Dosage: 2 MUG/KG, QWK
     Route: 058
     Dates: start: 20120411, end: 20120419
  4. PREDONINE [Concomitant]
     Indication: IDIOPATHIC THROMBOCYTOPENIC PURPURA
     Dosage: 6 MG, UNK
     Route: 048
     Dates: start: 20120228
  5. REVOLADE [Concomitant]
     Indication: IDIOPATHIC THROMBOCYTOPENIC PURPURA
     Dosage: 12.5 MG, UNK
     Route: 048
     Dates: start: 20120313
  6. CHICHINA [Concomitant]
     Indication: UTERINE LEIOMYOMA
     Dosage: UNK
     Route: 065
  7. RIKAVARIN [Concomitant]
     Indication: UTERINE LEIOMYOMA
     Dosage: UNK
     Route: 065
  8. FERROMIA [Concomitant]
     Indication: IRON DEFICIENCY ANAEMIA
     Dosage: UNK
     Route: 048
  9. PARTAN M [Concomitant]
     Indication: UTERINE LEIOMYOMA
     Dosage: UNK
     Route: 048
  10. TRANSAMIN [Concomitant]
     Indication: UTERINE LEIOMYOMA
     Dosage: UNK
     Route: 048
  11. ADONA [Concomitant]
     Indication: UTERINE LEIOMYOMA
     Dosage: UNK
     Route: 048
  12. BAKTAR [Concomitant]
     Indication: PROPHYLAXIS
     Dosage: UNK
     Route: 048
  13. NORLUTEN [Concomitant]
     Indication: UTERINE LEIOMYOMA
     Dosage: UNK
     Route: 048
  14. PREMARIN [Concomitant]
     Indication: UTERINE LEIOMYOMA
     Dosage: UNK
     Route: 048
  15. DINAGEST [Concomitant]
     Indication: UTERINE LEIOMYOMA
     Dosage: UNK
     Route: 048
  16. LEUPLIN [Concomitant]
     Indication: UTERINE LEIOMYOMA
     Dosage: UNK
     Route: 065
  17. PLATELETS [Concomitant]
     Dosage: 10 UNIT, UNK
     Dates: start: 20120309

REACTIONS (2)
  - Lacunar infarction [Recovered/Resolved with Sequelae]
  - Sepsis [Recovered/Resolved]
